FAERS Safety Report 4715872-0 (Version None)
Quarter: 2005Q3

REPORT INFORMATION
  Report Type: 
  Country: None (occurrence: None)
  Receive Date: 20050718
  Receipt Date: 20050707
  Transmission Date: 20060218
  Serious: Yes (Other)
  Sender: FDA-Public Use
  Company Number: BEWYE818408JUL05

PATIENT
  Sex: Female
  Weight: 54 kg

DRUGS (2)
  1. ENBREL [Suspect]
     Indication: SPONDYLOARTHROPATHY
     Route: 058
     Dates: start: 20030117, end: 20050530
  2. CELECOXIB [Concomitant]
     Indication: SPONDYLOARTHROPATHY
     Dosage: 400 MG/DAY
     Route: 048
     Dates: start: 20030117, end: 20050530

REACTIONS (2)
  - ABORTION INDUCED [None]
  - DRUG EXPOSURE DURING PREGNANCY [None]
